FAERS Safety Report 4597648-0 (Version None)
Quarter: 2005Q1

REPORT INFORMATION
  Report Type: 
  Country: None (occurrence: None)
  Receive Date: 20050303
  Receipt Date: 20050120
  Transmission Date: 20050727
  Serious: Yes (Disabling, Congenital Anomaly, Other)
  Sender: FDA-Public Use
  Company Number: GB-GLAXOSMITHKLINE-B0365138A

PATIENT
  Age: 14 Month
  Sex: Male

DRUGS (1)
  1. LAMICTAL [Suspect]
     Indication: EPILEPSY
     Dosage: 450MG PER DAY

REACTIONS (6)
  - BONE DISORDER [None]
  - DRUG EXPOSURE DURING PREGNANCY [None]
  - EXTERNAL EAR DISORDER [None]
  - OPTIC NERVE HYPOPLASIA [None]
  - RETINAL DISORDER [None]
  - TRACHEO-OESOPHAGEAL FISTULA [None]
